FAERS Safety Report 9650795 (Version 1)
Quarter: 2013Q4

REPORT INFORMATION
  Report Type: Spontaneous
  Country: US (occurrence: None)
  Receive Date: 20131025
  Receipt Date: 20131025
  Transmission Date: 20140711
  Serious: No
  Sender: FDA-Public Use
  Company Number: None

PATIENT
  Age: 56 Year
  Sex: Female
  Weight: 86.2 kg

DRUGS (11)
  1. INSULIN [Suspect]
     Indication: HYPERGLYCAEMIA
     Dates: start: 20110601, end: 20110602
  2. PREDNISONE [Concomitant]
  3. LABETALOL [Concomitant]
  4. HYDROCHLOROTHIAZIDE [Concomitant]
  5. CLONIDINE [Concomitant]
  6. AMLODIPINE [Concomitant]
  7. CAPTOPRIL [Concomitant]
  8. LACTOBACILLUS [Concomitant]
  9. SENNA [Concomitant]
  10. DOCUSATE [Concomitant]
  11. RANITIDINE [Concomitant]

REACTIONS (3)
  - Mental status changes [None]
  - Blood glucose decreased [None]
  - Laboratory test abnormal [None]
